FAERS Safety Report 11319559 (Version 1)
Quarter: 2015Q3

REPORT INFORMATION
  Report Type: Spontaneous
  Country: GR (occurrence: None)
  Receive Date: 20150727
  Receipt Date: 20150727
  Transmission Date: 20151125
  Serious: Yes (Hospitalization)
  Sender: FDA-Public Use
  Company Number: KAD201507-002340

PATIENT
  Sex: Female

DRUGS (3)
  1. RIBAVIRIN(RIBAVIRIN) [Suspect]
     Active Substance: RIBAVIRIN
     Indication: HEPATITIS C
     Dosage: ONE OR TWO DAYS, ORAL
     Route: 048
     Dates: start: 201507, end: 201507
  2. VIEKIRAX(OMBITASVIR, PARITAPREVIR, RITONAVIR) [Suspect]
     Active Substance: OMBITASVIR\PARITAPREVIR\RITONAVIR
     Indication: HEPATITIS C
     Dosage: ONE OR TWO DOSES, ORAL
     Route: 048
     Dates: start: 201507, end: 201507
  3. EXVIERA(DASABUVIR) [Suspect]
     Active Substance: DASABUVIR
     Indication: HEPATITIS C
     Dosage: ONE OR TWO DOSES, ORAL
     Route: 048
     Dates: start: 201507, end: 201507

REACTIONS (1)
  - Cholecystitis [None]

NARRATIVE: CASE EVENT DATE: 201507
